FAERS Safety Report 4341172-7 (Version None)
Quarter: 2004Q2

REPORT INFORMATION
  Report Type: 
  Country: None (occurrence: None)
  Receive Date: 20040419
  Receipt Date: 20040413
  Transmission Date: 20050107
  Serious: Yes (Death)
  Sender: FDA-Public Use
  Company Number: DE-GLAXOSMITHKLINE-D0043596A

PATIENT

DRUGS (1)
  1. VIANI [Suspect]
     Indication: ASTHMA
     Route: 055

REACTIONS (1)
  - CIRCULATORY COLLAPSE [None]
